FAERS Safety Report 6622853-9 (Version None)
Quarter: 2010Q1

REPORT INFORMATION
  Report Type: 
  Country: None (occurrence: None)
  Receive Date: 20100310
  Receipt Date: 20091228
  Transmission Date: 20100710
  Serious: Yes (Hospitalization)
  Sender: FDA-Public Use
  Company Number: US-BIOGENIDEC-2009BI042048

PATIENT
  Age: 32 Year
  Sex: Male
  Weight: 67 kg

DRUGS (1)
  1. AVONEX [Suspect]
     Indication: MULTIPLE SCLEROSIS
     Route: 030
     Dates: start: 20091002

REACTIONS (7)
  - ASTHENIA [None]
  - BALANCE DISORDER [None]
  - CLOSTRIDIAL INFECTION [None]
  - DEPRESSION [None]
  - FALL [None]
  - MULTIPLE SCLEROSIS RELAPSE [None]
  - NECK PAIN [None]
